FAERS Safety Report 4750006-8 (Version None)
Quarter: 2005Q3

REPORT INFORMATION
  Report Type: 
  Country: None (occurrence: None)
  Receive Date: 20050822
  Receipt Date: 20050712
  Transmission Date: 20060218
  Serious: Yes (Death, Hospitalization, Other)
  Sender: FDA-Public Use
  Company Number: US-MERCK-0507USA01660

PATIENT
  Age: 69 Year
  Sex: Female
  Weight: 55 kg

DRUGS (4)
  1. VIOXX [Suspect]
     Indication: ARTHRITIS
     Route: 048
     Dates: start: 19991101, end: 20000201
  2. VIOXX [Suspect]
     Route: 048
     Dates: start: 20040401
  3. PREDNISONE [Concomitant]
     Route: 065
  4. TYLENOL [Concomitant]
     Route: 065

REACTIONS (4)
  - CHRONIC OBSTRUCTIVE PULMONARY DISEASE [None]
  - DEATH [None]
  - MYOCARDIAL INFARCTION [None]
  - RESPIRATORY DISORDER [None]
